FAERS Safety Report 6748386-7 (Version None)
Quarter: 2010Q2

REPORT INFORMATION
  Report Type: 
  Country: None (occurrence: None)
  Receive Date: 20100601
  Receipt Date: 20100517
  Transmission Date: 20101027
  Serious: Yes (Other)
  Sender: FDA-Public Use
  Company Number: US-ASTRAZENECA-2008UW07363

PATIENT
  Sex: Female

DRUGS (10)
  1. SEROQUEL [Suspect]
     Route: 048
     Dates: start: 20050107
  2. TYLENOL W/ CODEINE [Concomitant]
     Indication: PAIN
     Dates: start: 20050107
  3. LEXAPRO [Concomitant]
     Dates: start: 20050107
  4. NEURONTIN [Concomitant]
     Dates: end: 20050107
  5. DOXEPIN HCL [Concomitant]
     Dates: start: 20051221
  6. CELEXA [Concomitant]
     Dates: start: 20051221
  7. AMBIEN [Concomitant]
     Dates: start: 20051221
  8. DILAUDID [Concomitant]
     Route: 030
     Dates: start: 20051221
  9. PHENERGAN [Concomitant]
     Route: 030
     Dates: start: 20051221
  10. VICODIN [Concomitant]
     Indication: PAIN
     Dates: start: 20051221

REACTIONS (2)
  - DIABETES MELLITUS [None]
  - NEUROPATHY PERIPHERAL [None]
